FAERS Safety Report 9324543 (Version 1)
Quarter: 2013Q2

REPORT INFORMATION
  Report Type: Spontaneous
  Country: US (occurrence: US)
  Receive Date: 20130603
  Receipt Date: 20130603
  Transmission Date: 20140414
  Serious: Yes (Other)
  Sender: FDA-Public Use
  Company Number: US-INCYTE CORPORATION-2012IN001860

PATIENT
  Age: 68 Year
  Sex: Female

DRUGS (16)
  1. JAKAFI [Suspect]
     Indication: MYELOFIBROSIS
     Dosage: 20 MG, BID
     Route: 048
     Dates: start: 201209
  2. JAKAFI [Suspect]
     Dosage: 20 MG, BID
     Route: 048
  3. TRIAMTERENE [Concomitant]
  4. ARTHROTEC [Concomitant]
  5. LORAZEPAM [Concomitant]
  6. ALBUTEROL [Concomitant]
  7. ALLOPURINOL [Concomitant]
  8. ASPIRIN [Concomitant]
     Dosage: 81 MG, UNK
  9. OMEGA 3 FISH OIL [Concomitant]
  10. MULTIVITAMIN [Concomitant]
  11. CITRACAL + D [Concomitant]
  12. HYDROCODONE [Concomitant]
  13. HYDROCHLOROTHIAZIDE [Concomitant]
  14. PANTOPRAZOLE [Concomitant]
  15. CARVEDILOL [Concomitant]
  16. BUMETANIDE [Concomitant]

REACTIONS (6)
  - Cardiac failure congestive [Unknown]
  - Hypertension [Unknown]
  - Hunger [Unknown]
  - Pain [Unknown]
  - Anaemia [Unknown]
  - Weight increased [Unknown]
